FAERS Safety Report 7768781-7 (Version None)
Quarter: 2011Q3

REPORT INFORMATION
  Report Type: 
  Country: None (occurrence: None)
  Receive Date: 20110922
  Receipt Date: 20100810
  Transmission Date: 20111222
  Serious: Yes (Hospitalization)
  Sender: FDA-Public Use
  Company Number: US-ASTRAZENECA-2010SE37614

PATIENT
  Age: 40 Year
  Sex: Female

DRUGS (8)
  1. CLOZAPINE [Suspect]
     Route: 065
  2. PAXIL [Concomitant]
  3. SEROQUEL [Suspect]
     Route: 048
  4. PREVACID [Concomitant]
  5. VISTARIL [Concomitant]
  6. CLONIPINE [Concomitant]
  7. DEPAKOTE [Concomitant]
  8. OXYCODONE HCL [Concomitant]

REACTIONS (4)
  - DYSARTHRIA [None]
  - BLOOD POTASSIUM DECREASED [None]
  - SOMNOLENCE [None]
  - INCORRECT DOSE ADMINISTERED [None]
